FAERS Safety Report 7523018-9 (Version None)
Quarter: 2011Q2

REPORT INFORMATION
  Report Type: 
  Country: None (occurrence: None)
  Receive Date: 20110603
  Receipt Date: 20110524
  Transmission Date: 20111010
  Serious: Yes (Hospitalization, Disabling, Other)
  Sender: FDA-Public Use
  Company Number: US-MERCK-0804USA03106

PATIENT
  Age: 53 Year
  Sex: Female
  Weight: 70 kg

DRUGS (13)
  1. NEXIUM [Concomitant]
     Route: 065
  2. DIOVAN [Concomitant]
     Route: 065
  3. FOSAMAX [Suspect]
     Route: 065
     Dates: start: 20060101, end: 20070101
  4. FORTEO [Concomitant]
     Route: 065
  5. PLAVIX [Concomitant]
     Route: 065
  6. OMEPRAZOLE [Concomitant]
     Route: 065
  7. FOSAMAX [Suspect]
     Indication: OSTEOPENIA
     Route: 048
     Dates: start: 20020101, end: 20070801
  8. PIROXICAM [Concomitant]
     Route: 065
  9. FOSAMAX PLUS D [Suspect]
     Indication: OSTEOPENIA
     Route: 048
     Dates: start: 20020101
  10. LIPITOR [Concomitant]
     Route: 065
  11. FOSAMAX [Suspect]
     Indication: OSTEOPOROSIS
     Route: 048
     Dates: start: 20020101, end: 20070801
  12. DARVOCET-N 50 [Concomitant]
     Route: 065
  13. FOSAMAX [Suspect]
     Route: 065
     Dates: start: 20060101, end: 20070101

REACTIONS (30)
  - PROTEIN URINE PRESENT [None]
  - BACK PAIN [None]
  - GAIT DISTURBANCE [None]
  - RASH [None]
  - ARTHRITIS [None]
  - CATARACT [None]
  - CHEST PAIN [None]
  - FRACTURE NONUNION [None]
  - DEVICE FAILURE [None]
  - ARTHRALGIA [None]
  - WHITE BLOOD CELL COUNT DECREASED [None]
  - ADVERSE DRUG REACTION [None]
  - DEHYDRATION [None]
  - HYPERLIPIDAEMIA [None]
  - GASTROOESOPHAGEAL REFLUX DISEASE [None]
  - HYPERTENSION [None]
  - PAIN IN EXTREMITY [None]
  - ADENOMYOSIS [None]
  - FEMUR FRACTURE [None]
  - PAIN [None]
  - HEADACHE [None]
  - RHINITIS ALLERGIC [None]
  - CORONARY ARTERY DISEASE [None]
  - BLOOD CREATININE INCREASED [None]
  - FALL [None]
  - GASTRIC ULCER [None]
  - PAIN IN JAW [None]
  - SUPRAVENTRICULAR EXTRASYSTOLES [None]
  - HYPERCHOLESTEROLAEMIA [None]
  - VENTRICULAR EXTRASYSTOLES [None]
